FAERS Safety Report 10288724 (Version 3)
Quarter: 2015Q3

REPORT INFORMATION
  Report Type: Spontaneous
  Country: US (occurrence: US)
  Receive Date: 20140709
  Receipt Date: 20150817
  Transmission Date: 20151125
  Serious: No
  Sender: FDA-Public Use
  Company Number: US-GILEAD-2013-0085049

PATIENT
  Age: 64 Year
  Sex: Female

DRUGS (2)
  1. LETAIRIS [Suspect]
     Active Substance: AMBRISENTAN
     Indication: PULMONARY HYPERTENSION
     Dosage: 5 MG, QD
     Route: 048
     Dates: start: 20130314
  2. LETAIRIS [Suspect]
     Active Substance: AMBRISENTAN
     Indication: SCOLIOSIS

REACTIONS (3)
  - Pruritus [Unknown]
  - Oedema peripheral [Unknown]
  - Rash [Unknown]

NARRATIVE: CASE EVENT DATE: 201303
